FAERS Safety Report 5131558-5 (Version None)
Quarter: 2006Q4

REPORT INFORMATION
  Report Type: 
  Country: None (occurrence: None)
  Receive Date: 20061020
  Receipt Date: 20061005
  Transmission Date: 20070319
  Serious: Yes (Other)
  Sender: FDA-Public Use
  Company Number: PHHO2006NZ17320

PATIENT
  Sex: Male

DRUGS (5)
  1. PREDNISOLONE [Concomitant]
     Indication: MULTIPLE MYELOMA
     Dosage: 50 MG, EVERY 48 HOURS
     Dates: start: 20040821, end: 20050828
  2. THALIDOMIDE [Concomitant]
     Indication: MULTIPLE MYELOMA
     Dosage: 200 MG, QHS
     Dates: start: 20040904, end: 20050131
  3. THALIDOMIDE [Concomitant]
     Dosage: UNK, NO TREATMENT
     Dates: start: 20050201, end: 20050330
  4. THALIDOMIDE [Concomitant]
     Dosage: 50 MG, QHS
     Route: 048
     Dates: start: 20050331, end: 20050802
  5. ZOLEDRONATE [Suspect]
     Indication: MULTIPLE MYELOMA
     Dosage: 4 MG, EVERY 4 WEEKS
     Route: 042
     Dates: start: 20040821, end: 20050214

REACTIONS (2)
  - MOUTH ULCERATION [None]
  - OSTEONECROSIS [None]
